FAERS Safety Report 8870959 (Version 1)
Quarter: 2012Q4

REPORT INFORMATION
  Report Type: 
  Country: EC (occurrence: EC)
  Receive Date: 20121029
  Receipt Date: 20121029
  Transmission Date: 20130627
  Serious: Yes (Hospitalization, Other)
  Sender: FDA-Public Use
  Company Number: PHHY2012EC096835

PATIENT
  Sex: Female

DRUGS (1)
  1. DIOVAN HCT [Suspect]
     Indication: HYPERTENSION
     Dosage: 1 DF (vals 160 mg, hydr 12.5 mg), UNK
     Route: 048

REACTIONS (5)
  - Liver disorder [Recovering/Resolving]
  - Postoperative wound infection [Recovering/Resolving]
  - Procedural pain [Recovering/Resolving]
  - Depression [Recovering/Resolving]
  - Oedema peripheral [Recovering/Resolving]
